FAERS Safety Report 8602123 (Version 5)
Quarter: 2012Q4

REPORT INFORMATION
  Report Type: 
  Country: US (occurrence: US)
  Receive Date: 20120607
  Receipt Date: 20120914
  Transmission Date: 20130627
  Serious: Yes (Death, Hospitalization, Other)
  Sender: FDA-Public Use
  Company Number: US-PFIZER INC-2012134763

PATIENT
  Age: 59 Year
  Sex: Female
  Weight: 67.5 kg

DRUGS (8)
  1. SUTENT [Suspect]
     Indication: LUNG DISORDER
     Dosage: 50 mg, cyclic, 1x/day (daily)
     Dates: start: 20120601
  2. SUTENT [Suspect]
     Indication: METASTATIC RENAL CELL CARCINOMA
     Dosage: 50 mg, UNK
     Dates: start: 20120714, end: 20120810
  3. SUTENT [Suspect]
     Indication: LUNG CANCER METASTATIC
  4. BENAZEPRIL [Concomitant]
     Indication: HYPERTENSION
     Dosage: 10 mg, 1x/day (daily)
  5. ONDANSETRON [Concomitant]
     Indication: PROPHYLAXIS OF NAUSEA AND VOMITING
     Dosage: UNK
  6. DEXAMETHASONE [Concomitant]
     Dosage: 4 mg, 3x/day
  7. LEVETIRACETAM [Concomitant]
     Dosage: 500 mg, 2x/day
  8. HYDROCODONE [Concomitant]
     Indication: PAIN
     Dosage: UNK

REACTIONS (12)
  - Death [Fatal]
  - Second primary malignancy [Unknown]
  - Brain neoplasm [Unknown]
  - Vomiting [Not Recovered/Not Resolved]
  - Abdominal pain upper [Unknown]
  - Malaise [Unknown]
  - Convulsion [Unknown]
  - VIIth nerve paralysis [Unknown]
  - Nausea [Recovered/Resolved]
  - Seasonal allergy [Unknown]
  - Nasopharyngitis [Unknown]
  - Cough [Unknown]
